FAERS Safety Report 13896606 (Version 1)
Quarter: 2017Q3

REPORT INFORMATION
  Report Type: Spontaneous
  Country: US (occurrence: None)
  Receive Date: 20170822
  Receipt Date: 20170822
  Transmission Date: 20171127
  Serious: Yes (Hospitalization)
  Sender: FDA-Public Use
  Company Number: None

PATIENT
  Age: 39 Year
  Sex: Female

DRUGS (1)
  1. BACTRIM DS [Suspect]
     Active Substance: SULFAMETHOXAZOLE\TRIMETHOPRIM
     Dates: start: 20141214, end: 20141221

REACTIONS (6)
  - Cholestasis [None]
  - Hepatitis B core antibody positive [None]
  - Fibrosis [None]
  - Hepatitis B surface antigen positive [None]
  - Hepatitis acute [None]
  - Drug-induced liver injury [None]

NARRATIVE: CASE EVENT DATE: 20150111
